FAERS Safety Report 8222001 (Version 2)
Quarter: 2013Q1

REPORT INFORMATION
  Report Type: Report from Study
  Country: None (occurrence: DK)
  Receive Date: 20111102
  Receipt Date: 20130103
  Transmission Date: 20140127
  Serious: Yes (Hospitalization)
  Sender: FDA-Public Use
  Company Number: DK-BAXTER-2011BH034656

PATIENT
  Age: 62 Year
  Sex: Male
  Weight: 104 kg

DRUGS (11)
  1. SENDOXAN [Suspect]
     Indication: DIFFUSE LARGE B-CELL LYMPHOMA
     Route: 042
     Dates: start: 20110926
  2. SENDOXAN [Suspect]
     Route: 042
     Dates: start: 20111014
  3. RITUXIMAB [Suspect]
     Indication: DIFFUSE LARGE B-CELL LYMPHOMA
     Route: 042
     Dates: start: 20110926, end: 20110930
  4. RITUXIMAB [Suspect]
     Route: 042
     Dates: start: 20111014
  5. DOXORUBICIN [Suspect]
     Indication: DIFFUSE LARGE B-CELL LYMPHOMA
     Route: 042
     Dates: start: 20110926
  6. DOXORUBICIN [Suspect]
     Route: 042
     Dates: start: 20111014
  7. VINCRISTINE SULFATE [Suspect]
     Indication: DIFFUSE LARGE B-CELL LYMPHOMA
     Route: 042
     Dates: start: 20110926
  8. VINCRISTINE SULFATE [Suspect]
     Route: 042
     Dates: start: 20111014
  9. G-CSF [Suspect]
     Indication: DIFFUSE LARGE B-CELL LYMPHOMA
     Route: 058
     Dates: start: 20110929
  10. PREDNISONE [Suspect]
     Indication: DIFFUSE LARGE B-CELL LYMPHOMA
     Route: 048
     Dates: start: 20110926
  11. PREDNISONE [Suspect]
     Route: 048
     Dates: start: 20111014

REACTIONS (1)
  - Skin infection [Recovered/Resolved]
